FAERS Safety Report 6231526-6 (Version None)
Quarter: 2009Q2

REPORT INFORMATION
  Report Type: 
  Country: None (occurrence: None)
  Receive Date: 20090616
  Receipt Date: 20090610
  Transmission Date: 20091009
  Serious: Yes (Death, Hospitalization)
  Sender: FDA-Public Use
  Company Number: B0578882A

PATIENT
  Sex: Female

DRUGS (4)
  1. TYVERB [Suspect]
     Indication: BREAST CANCER
     Dosage: 1250MG PER DAY
     Route: 048
     Dates: start: 20090525, end: 20090601
  2. XELODA [Concomitant]
     Indication: BREAST CANCER
     Dosage: 2000MG TWICE PER DAY
     Dates: start: 20090512
  3. DEXAMETHASONE [Concomitant]
     Dosage: 4MG TWICE PER DAY
     Dates: start: 20090512, end: 20090524
  4. DEXAMETHASONE [Concomitant]
     Dosage: 2MG TWICE PER DAY
     Dates: start: 20090525, end: 20090601

REACTIONS (4)
  - CIRCULATORY COLLAPSE [None]
  - DIARRHOEA [None]
  - HYPOTENSION [None]
  - SEPTIC SHOCK [None]
